FAERS Safety Report 9278159 (Version 1)
Quarter: 2013Q2

REPORT INFORMATION
  Report Type: Spontaneous
  Country: US (occurrence: None)
  Receive Date: 20130506
  Receipt Date: 20130506
  Transmission Date: 20140414
  Serious: Yes (Other)
  Sender: FDA-Public Use
  Company Number: None

PATIENT
  Age: 42 Year
  Sex: Female
  Weight: 77.11 kg

DRUGS (3)
  1. RHOGAM [Suspect]
     Dosage: ANTENATAL-ONCE
     Dates: start: 19961023, end: 19961023
  2. RHOGAM [Suspect]
     Dosage: POSTNATAL
     Dates: start: 19961230, end: 19961230
  3. RH-D-IMMUNE GLOBULIN [Concomitant]

REACTIONS (2)
  - Tremor [None]
  - Complex partial seizures [None]
